FAERS Safety Report 6991753-7 (Version None)
Quarter: 2010Q3

REPORT INFORMATION
  Report Type: 
  Country: None (occurrence: None)
  Receive Date: 20100917
  Receipt Date: 20100907
  Transmission Date: 20110219
  Serious: No
  Sender: FDA-Public Use
  Company Number: US-PFIZER INC-2010112909

PATIENT
  Sex: Female

DRUGS (4)
  1. SPIRONOLACTONE [Suspect]
  2. LABETALOL [Suspect]
  3. COREG [Suspect]
  4. CHLORTHALIDONE [Suspect]

REACTIONS (1)
  - DRUG INEFFECTIVE [None]
